FAERS Safety Report 13459838 (Version 1)
Quarter: 2017Q2

REPORT INFORMATION
  Report Type: Spontaneous
  Country: CO (occurrence: CO)
  Receive Date: 20170420
  Receipt Date: 20170420
  Transmission Date: 20170830
  Serious: Yes (Other)
  Sender: FDA-Public Use
  Company Number: CO-AMGEN-COLSP2017059335

PATIENT
  Age: 48 Year
  Sex: Female

DRUGS (2)
  1. ENBREL [Suspect]
     Active Substance: ETANERCEPT
     Dosage: 50 MG, WEEKLY
     Route: 058
     Dates: start: 2013
  2. ENBREL [Suspect]
     Active Substance: ETANERCEPT
     Indication: RHEUMATOID ARTHRITIS
     Dosage: 25 MG, 2X/WEEK
     Route: 058
     Dates: start: 2007, end: 2013

REACTIONS (9)
  - Mobility decreased [Recovered/Resolved]
  - Influenza [Not Recovered/Not Resolved]
  - Abasia [Recovered/Resolved]
  - Hypertension [Not Recovered/Not Resolved]
  - Swelling [Recovered/Resolved]
  - Pain [Recovered/Resolved]
  - Alopecia [Recovered/Resolved]
  - Cough [Not Recovered/Not Resolved]
  - Stress urinary incontinence [Not Recovered/Not Resolved]

NARRATIVE: CASE EVENT DATE: 201503
